FAERS Safety Report 6197574-X (Version None)
Quarter: 2009Q2

REPORT INFORMATION
  Report Type: 
  Country: None (occurrence: None)
  Receive Date: 20090521
  Receipt Date: 20080626
  Transmission Date: 20091009
  Serious: Yes (Hospitalization)
  Sender: FDA-Public Use
  Company Number: SK-B.I. PHARMACEUTICALS,INC./RIDGEFIELD-2008-DE-03582DE

PATIENT
  Sex: Male
  Weight: 95.5 kg

DRUGS (4)
  1. TELMISARTAN+AMLODIPINE [Suspect]
     Indication: HYPERTENSION
     Dosage: RT: TELMISARTAN 40MG+AMLODIPINE 10 MG
     Route: 048
  2. ANOPYRIN [Concomitant]
     Indication: PROPHYLAXIS
     Dosage: 100MG
     Route: 048
     Dates: start: 20021212
  3. METFORMIN HCL [Concomitant]
     Indication: DIABETES MELLITUS
     Dosage: 2550MG
     Route: 048
     Dates: start: 20060621
  4. FEBIRA [Concomitant]
     Indication: HYPERLIPIDAEMIA
     Dosage: 200MG
     Route: 048
     Dates: start: 20050824, end: 20080618

REACTIONS (1)
  - ATRIAL FIBRILLATION [None]
